FAERS Safety Report 8230911-0 (Version None)
Quarter: 2012Q1

REPORT INFORMATION
  Report Type: 
  Country: None (occurrence: None)
  Receive Date: 20120323
  Receipt Date: 20120315
  Transmission Date: 20120608
  Serious: Yes (Hospitalization)
  Sender: FDA-Public Use
  Company Number: IT-PFIZER INC-2012073146

PATIENT
  Sex: Male

DRUGS (1)
  1. CYTARABINE [Suspect]

REACTIONS (3)
  - PNEUMONITIS [None]
  - FEBRILE NEUTROPENIA [None]
  - ESCHERICHIA SEPSIS [None]
